FAERS Safety Report 16545084 (Version 1)
Quarter: 2019Q3

REPORT INFORMATION
  Report Type: Spontaneous
  Country: US (occurrence: US)
  Receive Date: 20190708
  Receipt Date: 20190708
  Transmission Date: 20191004
  Serious: Yes (Disabling)
  Sender: FDA-Public Use
  Company Number: None

PATIENT
  Age: 51 Year
  Sex: Female
  Weight: 60.75 kg

DRUGS (3)
  1. SYNTHROID [Concomitant]
     Active Substance: LEVOTHYROXINE SODIUM
  2. ATOROSTATIN [Concomitant]
  3. NITROFURANTOIN. [Suspect]
     Active Substance: NITROFURANTOIN
     Indication: URINARY TRACT INFECTION
     Dosage: ?          QUANTITY:1 CAPSULE(S);?
     Route: 048
     Dates: start: 20190701, end: 20190702

REACTIONS (7)
  - Paraesthesia [None]
  - Fatigue [None]
  - Dehydration [None]
  - Vomiting [None]
  - Nausea [None]
  - Muscular weakness [None]
  - Headache [None]

NARRATIVE: CASE EVENT DATE: 20190701
